FAERS Safety Report 25231789 (Version 1)
Quarter: 2025Q2

REPORT INFORMATION
  Report Type: Other
  Country: US (occurrence: US)
  Receive Date: 20250423
  Receipt Date: 20250423
  Transmission Date: 20250717
  Serious: Yes (Life-Threatening, Hospitalization)
  Sender: B BRAUN
  Company Number: US-B.Braun Medical Inc.-2175485

PATIENT
  Age: 15 Year
  Sex: Male

DRUGS (3)
  1. LIDOCAINE HYDROCHLORIDE [Suspect]
     Active Substance: LIDOCAINE HYDROCHLORIDE
     Indication: Pain
  2. KETAMINE [Concomitant]
     Active Substance: KETAMINE
  3. MEXILETINE [Concomitant]
     Active Substance: MEXILETINE

REACTIONS (6)
  - Cardiogenic shock [Unknown]
  - Bradycardia [Unknown]
  - Hypotension [Unknown]
  - Hypertonia [Unknown]
  - Mental status changes [Unknown]
  - Autonomic nervous system imbalance [Unknown]
